FAERS Safety Report 24646336 (Version 2)
Quarter: 2024Q4

REPORT INFORMATION
  Report Type: Spontaneous
  Country: US (occurrence: US)
  Receive Date: 20241121
  Receipt Date: 20241130
  Transmission Date: 20250114
  Serious: Yes (Hospitalization)
  Sender: ABBVIE
  Company Number: US-ABBVIE-6002186

PATIENT
  Age: 83 Year
  Sex: Male

DRUGS (1)
  1. LINZESS [Suspect]
     Active Substance: LINACLOTIDE
     Indication: Constipation
     Route: 048

REACTIONS (7)
  - Hospitalisation [Unknown]
  - Intestinal dilatation [Unknown]
  - Aphonia [Unknown]
  - Drug ineffective [Not Recovered/Not Resolved]
  - Vertigo [Unknown]
  - Anal incontinence [Unknown]
  - Secretion discharge [Unknown]
